FAERS Safety Report 20178766 (Version 1)
Quarter: 2021Q4

REPORT INFORMATION
  Report Type: Spontaneous
  Country: IN (occurrence: IN)
  Receive Date: 20211214
  Receipt Date: 20211214
  Transmission Date: 20220303
  Serious: Yes (Death, Other)
  Sender: FDA-Public Use
  Company Number: IN-AMGEN-INDSP2021195960

PATIENT
  Age: 4 Year
  Sex: Male

DRUGS (3)
  1. EVOLOCUMAB [Suspect]
     Active Substance: EVOLOCUMAB
     Indication: Type IIa hyperlipidaemia
     Dosage: UNK
     Route: 058
  2. EVOLOCUMAB [Suspect]
     Active Substance: EVOLOCUMAB
     Indication: Coronary artery disease
  3. EVOLOCUMAB [Suspect]
     Active Substance: EVOLOCUMAB
     Indication: Off label use

REACTIONS (3)
  - Cardiac arrest [Fatal]
  - Varicella [Unknown]
  - Off label use [Unknown]
